APPROVED DRUG PRODUCT: DOPAR
Active Ingredient: LEVODOPA
Strength: 100MG
Dosage Form/Route: CAPSULE;ORAL
Application: N016913 | Product #003
Applicant: SHIRE DEVELOPMENT INC
Approved: Approved Prior to Jan 1, 1982 | RLD: No | RS: No | Type: DISCN